FAERS Safety Report 12315159 (Version 3)
Quarter: 2016Q2

REPORT INFORMATION
  Report Type: Spontaneous
  Country: US (occurrence: US)
  Receive Date: 20160428
  Receipt Date: 20160609
  Transmission Date: 20160815
  Serious: Yes (Other)
  Sender: FDA-Public Use
  Company Number: US-MDT-ADR-2016-00770

PATIENT
  Age: 21 Year
  Sex: Female

DRUGS (7)
  1. BACLOFEN. [Suspect]
     Active Substance: BACLOFEN
     Dosage: 125.02MCG/DAY
     Route: 037
     Dates: start: 20150902
  2. TIZANIDINE. [Suspect]
     Active Substance: TIZANIDINE
     Dosage: 2MG THREE TIMES DAILY
  3. LAMICTAL [Suspect]
     Active Substance: LAMOTRIGINE
     Dosage: 200MG TWICE DAILY
  4. CLONAZEPAM. [Suspect]
     Active Substance: CLONAZEPAM
     Dosage: 0.25MG EVERY EVENING
  5. BACLOFEN. [Suspect]
     Active Substance: BACLOFEN
     Dosage: 144.03MCG/DAY
     Route: 037
     Dates: start: 20160120
  6. LIORESAL [Suspect]
     Active Substance: BACLOFEN
     Dosage: 144 MCG/DAY
     Route: 037
     Dates: start: 20160120, end: 20160425
  7. ROBINUL [Suspect]
     Active Substance: GLYCOPYRROLATE
     Dosage: 1MG TWICE DAILY

REACTIONS (2)
  - Hypertonia [Recovered/Resolved]
  - No therapeutic response [Recovered/Resolved]

NARRATIVE: CASE EVENT DATE: 20160423
